FAERS Safety Report 8789694 (Version 1)
Quarter: 2012Q4

REPORT INFORMATION
  Report Type: 
  Country: US (occurrence: None)
  Receive Date: 20120911
  Receipt Date: 20120911
  Transmission Date: 20130627
  Serious: Yes (Hospitalization)
  Sender: FDA-Public Use
  Company Number: None

PATIENT
  Age: 56 Year
  Sex: Female
  Weight: 64.5 kg

DRUGS (2)
  1. NERATINIB [Suspect]
     Route: 048
     Dates: start: 20120731
  2. DECADRON (DEXAMETHASONE) [Concomitant]

REACTIONS (3)
  - Contusion [None]
  - Faecal incontinence [None]
  - Headache [None]
